FAERS Safety Report 9250781 (Version 2)
Quarter: 2015Q1

REPORT INFORMATION
  Report Type: Spontaneous
  Country: US (occurrence: US)
  Receive Date: 20130424
  Receipt Date: 20150116
  Transmission Date: 20150721
  Serious: Yes (Hospitalization)
  Sender: FDA-Public Use
  Company Number: US-BAYER-2013-048872

PATIENT
  Age: 51 Year
  Sex: Female
  Weight: 66.67 kg

DRUGS (7)
  1. CEFTRIAXONE. [Concomitant]
     Active Substance: CEFTRIAXONE
     Dosage: UNK
     Dates: end: 20120919
  2. CIPROFLOXACIN. [Concomitant]
     Active Substance: CIPROFLOXACIN
     Indication: ESCHERICHIA INFECTION
  3. VANCOMYCIN [Concomitant]
     Active Substance: VANCOMYCIN
     Indication: LEUKOCYTOSIS
  4. CEFEPIME [Concomitant]
     Active Substance: CEFEPIME\CEFEPIME HYDROCHLORIDE
     Indication: LEUKOCYTOSIS
  5. BACTRIM [Concomitant]
     Active Substance: SULFAMETHOXAZOLE\TRIMETHOPRIM
     Indication: ESCHERICHIA INFECTION
  6. YASMIN [Suspect]
     Active Substance: DROSPIRENONE\ETHINYL ESTRADIOL
     Indication: MENORRHAGIA
     Dosage: UNK
     Dates: start: 20110501, end: 20120904
  7. YAZ [Suspect]
     Active Substance: DROSPIRENONE\ETHINYL ESTRADIOL

REACTIONS (10)
  - Speech disorder [None]
  - Cerebrovascular accident [None]
  - Nausea [None]
  - Superior sagittal sinus thrombosis [None]
  - Vomiting [None]
  - Fatigue [None]
  - Intracranial venous sinus thrombosis [None]
  - Cerebral infarction [None]
  - Muscular weakness [None]
  - Diarrhoea [None]

NARRATIVE: CASE EVENT DATE: 20120904
